FAERS Safety Report 9677868 (Version 2)
Quarter: 2013Q4

REPORT INFORMATION
  Report Type: Spontaneous
  Country: PL (occurrence: PL)
  Receive Date: 20131108
  Receipt Date: 20131128
  Transmission Date: 20140711
  Serious: Yes (Hospitalization, Disabling)
  Sender: FDA-Public Use
  Company Number: PL-RANBAXY-2013RR-75037

PATIENT
  Age: 4 Year
  Sex: Male

DRUGS (6)
  1. AMOXICILLIN/CLAVULANIC ACID [Suspect]
     Indication: LARYNGITIS
     Dosage: UNK
     Route: 065
  2. PREDNISONE [Suspect]
     Indication: LARYNGITIS
     Dosage: UNK
     Route: 065
  3. CEFUROXIME [Concomitant]
     Indication: PNEUMONIA
     Dosage: UNK
     Route: 065
  4. IPRATROPIUM BROMIDE [Concomitant]
     Indication: PNEUMONIA
     Dosage: UNK
     Route: 055
  5. FENOTEROL [Concomitant]
     Indication: PNEUMONIA
     Dosage: UNK
     Route: 055
  6. AMBROXOL [Concomitant]
     Indication: PNEUMONIA
     Dosage: UNK
     Route: 055

REACTIONS (1)
  - Myositis [Recovered/Resolved]
